FAERS Safety Report 7078542-2 (Version None)
Quarter: 2010Q4

REPORT INFORMATION
  Report Type: 
  Country: None (occurrence: None)
  Receive Date: 20101102
  Receipt Date: 20101025
  Transmission Date: 20110411
  Serious: Yes (Death, Other)
  Sender: FDA-Public Use
  Company Number: FR-GENZYME-THYM-1002002

PATIENT
  Sex: Male

DRUGS (15)
  1. THYMOGLOBULIN [Suspect]
     Indication: BONE MARROW CONDITIONING REGIMEN
     Dosage: UNK
     Route: 042
     Dates: start: 20100926, end: 20100928
  2. HEPARIN [Concomitant]
     Dosage: UNK
     Dates: start: 20100922
  3. FLUDARABINE [Concomitant]
     Indication: BONE MARROW CONDITIONING REGIMEN
     Dosage: UNK
     Dates: start: 20100923, end: 20100927
  4. BUSULFAN [Concomitant]
     Indication: BONE MARROW CONDITIONING REGIMEN
     Dosage: UNK
     Dates: start: 20100924, end: 20100926
  5. ZOPHREN [Concomitant]
  6. EMEND [Concomitant]
     Dosage: UNK
     Dates: end: 20100926
  7. RIVOTRIL [Concomitant]
     Dosage: UNK
  8. ZOVIRAX [Concomitant]
     Indication: URTICARIA
     Dosage: UNK
     Route: 042
     Dates: start: 20100923, end: 20100923
  9. CYCLOSPORINE [Concomitant]
     Dosage: UNK
     Route: 042
     Dates: start: 20100923
  10. COLIMYCINE [Concomitant]
     Indication: ANTI-INFECTIVE THERAPY
  11. TOBRAMYCIN [Concomitant]
     Indication: ANTI-INFECTIVE THERAPY
  12. FLAGYL [Concomitant]
     Dosage: UNK
     Dates: start: 20100923
  13. RIFAMPICIN [Concomitant]
     Indication: PROPHYLAXIS
     Dosage: UNK
     Dates: start: 20100924
  14. ISONIAZID [Concomitant]
     Indication: PROPHYLAXIS
     Dosage: UNK
     Dates: start: 20100924
  15. SODIUM CHLORIDE [Concomitant]
     Indication: SURGERY
     Dosage: UNK
     Dates: start: 20100929

REACTIONS (6)
  - CHILLS [None]
  - LUNG INFECTION [None]
  - PULMONARY OEDEMA [None]
  - PYREXIA [None]
  - RASH GENERALISED [None]
  - RESPIRATORY DISTRESS [None]
